FAERS Safety Report 12602745 (Version 1)
Quarter: 2016Q3

REPORT INFORMATION
  Report Type: Spontaneous
  Country: IT (occurrence: IT)
  Receive Date: 20160728
  Receipt Date: 20160728
  Transmission Date: 20161109
  Serious: Yes (Other)
  Sender: FDA-Public Use
  Company Number: IT-PFIZER INC-2016336960

PATIENT
  Age: 70 Year
  Sex: Female
  Weight: 55 kg

DRUGS (11)
  1. TESAVEL [Concomitant]
     Active Substance: SITAGLIPTIN PHOSPHATE
     Dosage: 100 MG, UNK
     Route: 048
  2. MINIAS [Concomitant]
     Active Substance: LORMETAZEPAM
     Dosage: 20 GTT, UNK
     Route: 048
  3. ACTOS [Concomitant]
     Active Substance: PIOGLITAZONE HYDROCHLORIDE
     Dosage: 20 MG, UNK
     Route: 048
  4. ZOFRAN [Concomitant]
     Active Substance: ONDANSETRON HYDROCHLORIDE
     Indication: PROPHYLAXIS OF NAUSEA AND VOMITING
     Dosage: 8 MG, UNK
     Dates: start: 20111122, end: 20120220
  5. GLICLAZIDE [Concomitant]
     Active Substance: GLICLAZIDE
     Dosage: 60 MG, UNK
  6. MEPRAL /00661201/ [Concomitant]
     Dosage: 20 MG, UNK
     Route: 048
  7. FARMORUBICINA [Suspect]
     Active Substance: EPIRUBICIN HYDROCHLORIDE
     Indication: ENDOMETRIAL CANCER
     Dosage: 90 MG, CYCLIC
     Route: 042
     Dates: start: 20111122, end: 20120220
  8. SINVACOR [Concomitant]
     Active Substance: SIMVASTATIN
     Dosage: 1 DF, UNK
     Route: 048
  9. MOVICOL [Concomitant]
     Active Substance: POLYETHYLENE GLYCOL 3350\POTASSIUM CHLORIDE\SODIUM BICARBONATE\SODIUM CHLORIDE
     Dosage: 13.8 G, UNK
     Route: 048
  10. CARBOPLATIN. [Suspect]
     Active Substance: CARBOPLATIN
     Indication: ENDOMETRIAL CANCER
     Dosage: 400 MG, CYCLIC
     Route: 042
     Dates: start: 20111122, end: 20120220
  11. DECADRON [Concomitant]
     Active Substance: DEXAMETHASONE
     Indication: INFLAMMATION
     Dosage: 20 MG, UNK
     Dates: start: 20111122, end: 20120220

REACTIONS (5)
  - Neutropenia [Recovered/Resolved]
  - Tongue ulceration [Recovered/Resolved]
  - Flank pain [Recovered/Resolved]
  - Product use issue [Unknown]
  - Abdominal pain lower [Unknown]

NARRATIVE: CASE EVENT DATE: 20120220
